FAERS Safety Report 6842302-5 (Version None)
Quarter: 2010Q3

REPORT INFORMATION
  Report Type: 
  Country: None (occurrence: None)
  Receive Date: 20100714
  Receipt Date: 20070725
  Transmission Date: 20110219
  Serious: No
  Sender: FDA-Public Use
  Company Number: US-PFIZER INC-2007063304

PATIENT
  Sex: Male
  Weight: 72.6 kg

DRUGS (1)
  1. CHANTIX [Suspect]
     Indication: SMOKING CESSATION THERAPY
     Dosage: EVERY DAY
     Dates: start: 20070101, end: 20070701

REACTIONS (5)
  - COLD SWEAT [None]
  - DISORIENTATION [None]
  - DYSPEPSIA [None]
  - HOT FLUSH [None]
  - HYPERHIDROSIS [None]
